FAERS Safety Report 20182014 (Version 2)
Quarter: 2021Q4

REPORT INFORMATION
  Report Type: Spontaneous
  Country: IN (occurrence: IN)
  Receive Date: 20211214
  Receipt Date: 20211227
  Transmission Date: 20220303
  Serious: Yes (Death, Other)
  Sender: FDA-Public Use
  Company Number: IN-PFIZER INC-2019094965

PATIENT
  Age: 79 Year
  Sex: Female

DRUGS (4)
  1. PALBOCICLIB [Suspect]
     Active Substance: PALBOCICLIB
     Indication: Breast cancer metastatic
     Dosage: 125 MG, 1X/DA, CYCLIC
     Route: 048
     Dates: start: 20180707
  2. PALBOCICLIB [Suspect]
     Active Substance: PALBOCICLIB
     Dosage: 125 MG CYCLIC(125MG/DAY X 21 DAYS/ MONTH X 6 MONTHS)
     Route: 048
     Dates: start: 20210317
  3. PALBOCICLIB [Suspect]
     Active Substance: PALBOCICLIB
     Dosage: 125 MG, 1X/DA, CYCLIC
     Route: 048
     Dates: end: 20211003
  4. EXEMESTANE [Suspect]
     Active Substance: EXEMESTANE
     Indication: Breast cancer metastatic

REACTIONS (3)
  - Pancreatitis acute [Fatal]
  - Product use issue [Unknown]
  - Off label use [Unknown]
